FAERS Safety Report 25438586 (Version 2)
Quarter: 2025Q3

REPORT INFORMATION
  Report Type: Spontaneous
  Country: US (occurrence: US)
  Receive Date: 20250616
  Receipt Date: 20250912
  Transmission Date: 20251021
  Serious: No
  Sender: BRISTOL-MYERS SQUIBB COMPANY
  Company Number: US-BRISTOL-MYERS SQUIBB COMPANY-2025-085112

PATIENT
  Age: 62 Year
  Sex: Female

DRUGS (2)
  1. ORENCIA [Suspect]
     Active Substance: ABATACEPT
     Indication: Rheumatoid arthritis
     Dates: start: 2025
  2. ORENCIA [Suspect]
     Active Substance: ABATACEPT
     Dates: start: 202505

REACTIONS (3)
  - General physical health deterioration [Unknown]
  - Pain [Unknown]
  - Gait disturbance [Unknown]
